FAERS Safety Report 9947690 (Version 2)
Quarter: 2014Q1

REPORT INFORMATION
  Report Type: Report from Study
  Country: US (occurrence: US)
  Receive Date: 20140303
  Receipt Date: 20140303
  Transmission Date: 20141002
  Serious: No
  Sender: FDA-Public Use
  Company Number: US-ABBVIE-13P-163-1056763-00

PATIENT
  Age: 65 Year
  Sex: Female

DRUGS (4)
  1. HUMIRA [Suspect]
     Indication: RHEUMATOID ARTHRITIS
     Route: 058
     Dates: start: 201208, end: 201212
  2. HUMIRA [Suspect]
     Indication: PSORIASIS
     Route: 058
     Dates: start: 201301
  3. METHOTREXATE [Concomitant]
     Indication: RHEUMATOID ARTHRITIS
  4. METHOTREXATE [Concomitant]
     Indication: PSORIASIS

REACTIONS (3)
  - Oropharyngeal pain [Recovered/Resolved]
  - Laryngitis [Recovered/Resolved]
  - Influenza [Recovered/Resolved]
